FAERS Safety Report 7524878-8 (Version None)
Quarter: 2011Q2

REPORT INFORMATION
  Report Type: 
  Country: None (occurrence: None)
  Receive Date: 20110606
  Receipt Date: 20110523
  Transmission Date: 20111010
  Serious: Yes (Hospitalization)
  Sender: FDA-Public Use
  Company Number: US-ELI_LILLY_AND_COMPANY-US201105007561

PATIENT
  Sex: Female

DRUGS (1)
  1. FORTEO [Suspect]
     Dosage: 20 UG, QD
     Route: 058
     Dates: start: 20090801

REACTIONS (4)
  - MALAISE [None]
  - VARICOSE VEIN RUPTURED [None]
  - DEHYDRATION [None]
  - PERIPHERAL VASCULAR DISORDER [None]
